FAERS Safety Report 7519825-9 (Version None)
Quarter: 2011Q2

REPORT INFORMATION
  Report Type: 
  Country: None (occurrence: None)
  Receive Date: 20110602
  Receipt Date: 20110525
  Transmission Date: 20111010
  Serious: Yes (Life-Threatening, Hospitalization)
  Sender: FDA-Public Use
  Company Number: FR-GENZYME-THYM-1002299

PATIENT
  Sex: Female
  Weight: 60 kg

DRUGS (7)
  1. ACETAMINOPHEN [Concomitant]
     Indication: PRODUCT USED FOR UNKNOWN INDICATION
     Dosage: 1000 MG, UNK
     Route: 042
  2. MABCAMPATH [Suspect]
     Indication: BONE MARROW CONDITIONING REGIMEN
     Dosage: 20 MG, QD
     Route: 042
     Dates: start: 20101211, end: 20101212
  3. NEXIUM [Concomitant]
     Indication: PRODUCT USED FOR UNKNOWN INDICATION
     Dosage: 40 MG, UNK
     Route: 042
  4. DEXAMETHASONE [Concomitant]
     Indication: PRODUCT USED FOR UNKNOWN INDICATION
     Route: 042
  5. THYMOGLOBULIN [Suspect]
     Indication: BONE MARROW CONDITIONING REGIMEN
     Dosage: 2.5 MG/KG, UNK
     Route: 042
     Dates: start: 20101210, end: 20101210
  6. TRAMADOL HYDROCHLORIDE [Concomitant]
     Indication: PRODUCT USED FOR UNKNOWN INDICATION
     Dosage: 50 MG, UNK
     Route: 042
  7. SOLU-MEDROL [Concomitant]
     Indication: PRODUCT USED FOR UNKNOWN INDICATION
     Dosage: 120 MG, UNK
     Route: 042

REACTIONS (4)
  - ABDOMINAL PAIN UPPER [None]
  - DRUG ADMINISTRATION ERROR [None]
  - ANGIOEDEMA [None]
  - RASH [None]
